FAERS Safety Report 4424293-X (Version None)
Quarter: 2004Q3

REPORT INFORMATION
  Report Type: 
  Country: None (occurrence: None)
  Receive Date: 20040806
  Receipt Date: 20040806
  Transmission Date: 20050211
  Serious: Yes (Other)
  Sender: FDA-Public Use
  Company Number: None

PATIENT
  Sex: Male
  Weight: 124.2856 kg

DRUGS (3)
  1. ALLOPURINOL [Suspect]
     Indication: GOUTY ARTHRITIS
     Dosage: ONE TAB  DAILY  ORAL
     Route: 048
     Dates: start: 20031028, end: 20040808
  2. ALLOPURINOL [Suspect]
     Indication: HYPERURICAEMIA
     Dosage: ONE TAB  DAILY  ORAL
     Route: 048
     Dates: start: 20031028, end: 20040808
  3. ASPIRIN [Concomitant]

REACTIONS (3)
  - BLOOD URIC ACID INCREASED [None]
  - DRUG INEFFECTIVE [None]
  - PHARMACEUTICAL PRODUCT COMPLAINT [None]
